FAERS Safety Report 5416304-X (Version None)
Quarter: 2007Q3

REPORT INFORMATION
  Report Type: 
  Country: None (occurrence: None)
  Receive Date: 20070718
  Receipt Date: 20060525
  Transmission Date: 20080115
  Serious: Yes (Hospitalization, Other)
  Sender: FDA-Public Use
  Company Number: 2006019967

PATIENT
  Age: 38 Year
  Sex: Female
  Weight: 74.8435 kg

DRUGS (4)
  1. CELEBREX [Suspect]
     Indication: BACK PAIN
     Dosage: (200 MG, PRN)
     Dates: start: 20050401, end: 20060101
  2. ALLEGRA [Concomitant]
  3. ORTH-CEPT (DESOGETREL, ETHINYLESTRADIOL) [Concomitant]
  4. VICODIN [Concomitant]

REACTIONS (1)
  - ANAPHYLACTIC REACTION [None]
